FAERS Safety Report 15498752 (Version 1)
Quarter: 2018Q4

REPORT INFORMATION
  Report Type: Spontaneous
  Country: US (occurrence: US)
  Receive Date: 20181005
  Receipt Date: 20181005
  Transmission Date: 20190205
  Serious: No
  Sender: FDA-Public Use
  Company Number: None

PATIENT
  Age: 71 Year
  Sex: Female
  Weight: 51.75 kg

DRUGS (4)
  1. ALENDRONATE SODIUM TABLETS USP 70MG [Suspect]
     Active Substance: ALENDRONATE SODIUM
     Indication: OSTEOPOROSIS
     Dosage: ?          QUANTITY:4 TABLET(S);?
     Route: 048
     Dates: start: 20110228, end: 20181005
  2. VITAMIN C [Concomitant]
     Active Substance: ASCORBIC ACID
  3. PREMPRO [Concomitant]
     Active Substance: ESTROGENS, CONJUGATED\MEDROXYPROGESTERONE ACETATE
  4. MULTI-VITAMIN [Concomitant]
     Active Substance: .ALPHA.-TOCOPHEROL ACETATE, DL-\ASCORBIC ACID\CYANOCOBALAMIN\FLUORIDE ION\FOLIC ACID\NIACIN\PYRIDOXINE\RIBOFLAVIN\THIAMINE\VITAMIN A\VITAMIN D

REACTIONS (5)
  - Therapy cessation [None]
  - Diarrhoea [None]
  - Nausea [None]
  - Dyspepsia [None]
  - Vomiting [None]

NARRATIVE: CASE EVENT DATE: 20150212
